FAERS Safety Report 11025409 (Version 2)
Quarter: 2015Q2

REPORT INFORMATION
  Report Type: Spontaneous
  Country: JP (occurrence: JP)
  Receive Date: 20150414
  Receipt Date: 20150430
  Transmission Date: 20150821
  Serious: Yes (Life-Threatening)
  Sender: FDA-Public Use
  Company Number: JP-TEVA-552295ISR

PATIENT
  Age: 56 Year
  Sex: Female

DRUGS (1)
  1. SAXIZON [Suspect]
     Active Substance: HYDROCORTISONE SODIUM SUCCINATE
     Indication: ASTHMA
     Dosage: 100 MILLIGRAM DAILY;
     Route: 041
     Dates: start: 20150401, end: 20150401

REACTIONS (4)
  - Tachycardia [Unknown]
  - Feeling abnormal [Recovered/Resolved]
  - Cold sweat [Unknown]
  - Blood pressure decreased [Recovered/Resolved]

NARRATIVE: CASE EVENT DATE: 20150401
